FAERS Safety Report 18970551 (Version 2)
Quarter: 2021Q2

REPORT INFORMATION
  Report Type: Spontaneous
  Country: BR (occurrence: BR)
  Receive Date: 20210305
  Receipt Date: 20210402
  Transmission Date: 20210717
  Serious: No
  Sender: FDA-Public Use
  Company Number: BR-ABBVIE-21K-020-3800116-00

PATIENT
  Age: 32 Year
  Sex: Female

DRUGS (1)
  1. ABT?494 [Suspect]
     Active Substance: UPADACITINIB
     Indication: RHEUMATOID ARTHRITIS
     Route: 048

REACTIONS (1)
  - Vaginal haemorrhage [Recovered/Resolved]
